FAERS Safety Report 24047537 (Version 3)
Quarter: 2024Q3

REPORT INFORMATION
  Report Type: Spontaneous
  Country: GB (occurrence: GB)
  Receive Date: 20240703
  Receipt Date: 20240717
  Transmission Date: 20241016
  Serious: Yes (Other)
  Sender: TEVA
  Company Number: GB-MLMSERVICE-20240530-PI081756-00097-1

PATIENT
  Sex: Male

DRUGS (11)
  1. PREDNISOLONE [Suspect]
     Active Substance: PREDNISOLONE
     Indication: Cytopenia
     Dosage: UNK (TAPERING)
     Route: 065
  2. PREDNISOLONE [Suspect]
     Active Substance: PREDNISOLONE
     Indication: Cytopenia
     Dosage: TAPERING
     Route: 065
  3. PREDNISOLONE [Suspect]
     Active Substance: PREDNISOLONE
     Indication: Cytopenia
     Route: 065
     Dates: start: 2016
  4. PREDNISOLONE [Suspect]
     Active Substance: PREDNISOLONE
     Indication: Cytopenia
     Dosage: TAPERING
     Route: 065
  5. PREDNISOLONE [Suspect]
     Active Substance: PREDNISOLONE
     Indication: Cytopenia
     Dosage: 5 MG (CONTINUED ON 5MG)
     Route: 065
     Dates: start: 2023
  6. CYCLOSPORINE [Suspect]
     Active Substance: CYCLOSPORINE
     Indication: Prophylaxis against graft versus host disease
     Dosage: UNK
     Route: 065
     Dates: start: 2006, end: 2007
  7. CYCLOSPORINE [Suspect]
     Active Substance: CYCLOSPORINE
     Indication: Prophylaxis against graft versus host disease
     Dosage: CYCLOSPORINE
     Route: 065
     Dates: start: 2006, end: 2007
  8. CYCLOSPORINE [Suspect]
     Active Substance: CYCLOSPORINE
     Indication: Prophylaxis against graft versus host disease
     Dosage: CYCLOSPORINE
     Route: 065
     Dates: start: 2006, end: 2007
  9. CYCLOSPORINE [Suspect]
     Active Substance: CYCLOSPORINE
     Indication: Prophylaxis against graft versus host disease
     Dosage: CYCLOSPORINE
     Route: 065
  10. SIROLIMUS [Suspect]
     Active Substance: SIROLIMUS
     Indication: Cytopenia
     Route: 065
  11. SIROLIMUS [Suspect]
     Active Substance: SIROLIMUS
     Indication: Cytopenia
     Dosage: 2 MG
     Route: 065
     Dates: start: 2023

REACTIONS (2)
  - Epstein-Barr virus associated lymphoma [Unknown]
  - Diffuse large B-cell lymphoma [Unknown]
